FAERS Safety Report 15703548 (Version 1)
Quarter: 2018Q4

REPORT INFORMATION
  Report Type: Spontaneous
  Country: US (occurrence: US)
  Receive Date: 20181210
  Receipt Date: 20181210
  Transmission Date: 20190205
  Serious: Yes (Life-Threatening, Hospitalization)
  Sender: FDA-Public Use
  Company Number: None

PATIENT
  Age: 14 Year
  Sex: Male
  Weight: 50 kg

DRUGS (1)
  1. ZOLMITRIPTAN NASAL SPRAY [Suspect]
     Active Substance: ZOLMITRIPTAN
     Indication: MIGRAINE
     Route: 045

REACTIONS (4)
  - Drug ineffective [None]
  - Cerebrovascular accident [None]
  - Neck pain [None]
  - Vasospasm [None]

NARRATIVE: CASE EVENT DATE: 20180731
